FAERS Safety Report 6708054-4 (Version None)
Quarter: 2010Q2

REPORT INFORMATION
  Report Type: 
  Country: None (occurrence: None)
  Receive Date: 20100503
  Receipt Date: 20100426
  Transmission Date: 20101027
  Serious: Yes (Death)
  Sender: FDA-Public Use
  Company Number: US-GILEAD-2010-0028190

PATIENT
  Sex: Female
  Weight: 68.1 kg

DRUGS (20)
  1. LETAIRIS [Suspect]
     Indication: PULMONARY ARTERIAL HYPERTENSION
     Route: 048
     Dates: start: 20091202
  2. ASPIRIN [Concomitant]
  3. LISINOPRIL [Concomitant]
  4. AMLODIPINE [Concomitant]
  5. CARVEDILOL [Concomitant]
  6. CRESTOR [Concomitant]
  7. XOPENEX [Concomitant]
  8. IPRATROPIUM [Concomitant]
  9. PULMICORT [Concomitant]
  10. JANUVIA [Concomitant]
  11. MILK OF MAGNESIA TAB [Concomitant]
  12. APLISOL [Concomitant]
  13. XENADERM [Concomitant]
  14. ZEMPLAR [Concomitant]
  15. PROCRIT [Concomitant]
  16. PROPOXYPHEN [Concomitant]
  17. ACETAMINOPHEN [Concomitant]
  18. OYSTER SHELL [Concomitant]
  19. NEPHROVITE [Concomitant]
  20. VITAMIN E [Concomitant]

REACTIONS (1)
  - DEATH [None]
